FAERS Safety Report 4328704-X (Version None)
Quarter: 2004Q1

REPORT INFORMATION
  Report Type: 
  Country: None (occurrence: None)
  Receive Date: 20040329
  Receipt Date: 20031204
  Transmission Date: 20041129
  Serious: Yes (Hospitalization)
  Sender: FDA-Public Use
  Company Number: 03P-163-0240124-00

PATIENT
  Age: 56 Year
  Sex: Female
  Weight: 92.5338 kg

DRUGS (7)
  1. HUMIRA [Suspect]
     Indication: RHEUMATOID ARTHRITIS
     Dosage: 40 MG, 1 IN 2 WK, SUBCUTANEOUS
     Route: 058
     Dates: start: 20030601
  2. METHOTREXATE [Concomitant]
  3. PREDNISONE [Concomitant]
  4. BENAZEPRIL HCL [Concomitant]
  5. FUROSEMIDE [Concomitant]
  6. VICODIN [Concomitant]
  7. EYE DROPS [Concomitant]

REACTIONS (6)
  - ASTHMA [None]
  - EYE SWELLING [None]
  - HYPERSENSITIVITY [None]
  - PNEUMONIA [None]
  - RASH ERYTHEMATOUS [None]
  - URINARY TRACT INFECTION [None]
